FAERS Safety Report 10093373 (Version 1)
Quarter: 2014Q2

REPORT INFORMATION
  Report Type: Spontaneous
  Country: US (occurrence: US)
  Receive Date: 20140421
  Receipt Date: 20140421
  Transmission Date: 20141212
  Serious: No
  Sender: FDA-Public Use
  Company Number: US-SA-2013SA110927

PATIENT
  Age: 64 Year
  Sex: Female

DRUGS (7)
  1. ALLEGRA [Suspect]
     Indication: ECZEMA
     Route: 048
  2. ZYRTEC [Concomitant]
     Indication: ECZEMA
  3. CALCIUM [Concomitant]
  4. MAGNESIUM [Concomitant]
  5. SYNTHROID [Concomitant]
  6. VITAMIN D3 [Concomitant]
  7. CLARITIN [Concomitant]

REACTIONS (1)
  - Drug ineffective [Unknown]
